FAERS Safety Report 9910370 (Version 1)
Quarter: 2014Q1

REPORT INFORMATION
  Report Type: Spontaneous
  Country: BE (occurrence: BE)
  Receive Date: 20140219
  Receipt Date: 20140219
  Transmission Date: 20141002
  Serious: Yes (Hospitalization)
  Sender: FDA-Public Use
  Company Number: BE-PFIZER INC-2014044355

PATIENT
  Age: 64 Year
  Sex: Female

DRUGS (15)
  1. PREGABALIN [Suspect]
     Indication: NEURALGIA
     Dosage: 75 MG, DAILY, FOR 9 DAYS
  2. PREGABALIN [Suspect]
     Dosage: 75 MG, 2X/DAY
  3. CLONAZEPAM [Concomitant]
     Dosage: UNK
  4. AMLODIPINE [Concomitant]
     Dosage: UNK
  5. L-THYROXIN [Concomitant]
     Dosage: UNK
  6. METFORMIN [Concomitant]
     Dosage: UNK
  7. REPAGLINIDE [Concomitant]
     Dosage: UNK
  8. SPIRONOLACTONE [Concomitant]
     Dosage: UNK
  9. FUROSEMIDE [Concomitant]
     Dosage: UNK
  10. MINOXIDIL [Concomitant]
     Dosage: UNK
  11. IRBESARTAN [Concomitant]
     Dosage: UNK
  12. HYDROCHLOROTHIAZIDE [Concomitant]
     Dosage: UNK
  13. ACYCLOVIR [Concomitant]
     Dosage: UNK
  14. PANTOPRAZOLE [Concomitant]
     Dosage: UNK
  15. FENOFIBRATE [Concomitant]
     Dosage: UNK

REACTIONS (5)
  - Encephalopathy [Recovered/Resolved]
  - Myoclonus [Recovered/Resolved]
  - Confusional state [Recovered/Resolved]
  - Speech disorder [Recovered/Resolved]
  - Hallucination, visual [Recovered/Resolved]
